FAERS Safety Report 5871614-7 (Version None)
Quarter: 2008Q3

REPORT INFORMATION
  Report Type: 
  Country: None (occurrence: None)
  Receive Date: 20080905
  Receipt Date: 20080709
  Transmission Date: 20090109
  Serious: No
  Sender: FDA-Public Use
  Company Number: A0736706A

PATIENT
  Age: 54 Year
  Sex: Female

DRUGS (6)
  1. REQUIP [Suspect]
     Indication: RESTLESS LEGS SYNDROME
     Dosage: .25MG PER DAY
     Route: 048
     Dates: start: 20080707
  2. FLONASE [Concomitant]
  3. PATANOL [Concomitant]
  4. ASTELIN [Concomitant]
  5. ZYRTEC [Concomitant]
  6. VITAMIN TAB [Concomitant]

REACTIONS (3)
  - EXPIRED DRUG ADMINISTERED [None]
  - INSOMNIA [None]
  - SOMNOLENCE [None]
